FAERS Safety Report 18396950 (Version 1)
Quarter: 2020Q4

REPORT INFORMATION
  Report Type: Spontaneous
  Country: US (occurrence: US)
  Receive Date: 20201019
  Receipt Date: 20201019
  Transmission Date: 20210114
  Serious: Yes (Other)
  Sender: FDA-Public Use
  Company Number: US-GLENMARK PHARMACEUTICALS-2020GMK049054

PATIENT

DRUGS (4)
  1. METOPROLOL. [Concomitant]
     Active Substance: METOPROLOL
     Indication: HYPERTENSION
     Dosage: UNK
     Route: 048
  2. MUPIROCIN OINTMENT USP, 2% [Suspect]
     Active Substance: MUPIROCIN
     Indication: LIP DISORDER
  3. LOSARTAN. [Concomitant]
     Active Substance: LOSARTAN
     Indication: HYPERTENSION
     Dosage: UNK
     Route: 048
  4. MUPIROCIN OINTMENT USP, 2% [Suspect]
     Active Substance: MUPIROCIN
     Indication: ORAL INFECTION
     Dosage: UNK, BID (TWICE A DAY ON LIP)
     Route: 061
     Dates: start: 20200622, end: 202007

REACTIONS (11)
  - Lip ulceration [Recovering/Resolving]
  - Application site irritation [Recovering/Resolving]
  - Application site vesicles [Recovering/Resolving]
  - Application site erythema [Recovering/Resolving]
  - Skin infection [Recovering/Resolving]
  - Lip disorder [Recovering/Resolving]
  - Drug ineffective [Unknown]
  - Arthritis [Unknown]
  - Lip discolouration [Recovering/Resolving]
  - Skin tightness [Not Recovered/Not Resolved]
  - Lip swelling [Recovering/Resolving]

NARRATIVE: CASE EVENT DATE: 2020
